FAERS Safety Report 15489100 (Version 3)
Quarter: 2018Q4

REPORT INFORMATION
  Report Type: Spontaneous
  Country: US (occurrence: US)
  Receive Date: 20181011
  Receipt Date: 20181126
  Transmission Date: 20190205
  Serious: No
  Sender: FDA-Public Use
  Company Number: US-PFIZER INC-2017081480

PATIENT
  Age: 67 Year
  Sex: Female
  Weight: 51 kg

DRUGS (3)
  1. CELEBREX [Suspect]
     Active Substance: CELECOXIB
     Indication: ARTHRITIS
     Dosage: 200 MG, 2X/DAY
     Route: 048
  2. LYRICA [Concomitant]
     Active Substance: PREGABALIN
     Dosage: 100 MG, 2X/DAY
  3. CELEBREX [Suspect]
     Active Substance: CELECOXIB
     Dosage: 10 MG, 2X/DAY
     Dates: start: 1985, end: 201806

REACTIONS (2)
  - Arthritis [Not Recovered/Not Resolved]
  - Scoliosis [Not Recovered/Not Resolved]

NARRATIVE: CASE EVENT DATE: 2006
